FAERS Safety Report 19835142 (Version 2)
Quarter: 2021Q4

REPORT INFORMATION
  Report Type: Spontaneous
  Country: US (occurrence: US)
  Receive Date: 20210915
  Receipt Date: 20211005
  Transmission Date: 20220303
  Serious: Yes (Other)
  Sender: FDA-Public Use
  Company Number: US-FERRINGPH-2021FE05806

PATIENT
  Age: 68 Year
  Sex: Female
  Weight: 58.05 kg

DRUGS (1)
  1. CLENPIQ [Suspect]
     Active Substance: ANHYDROUS CITRIC ACID\MAGNESIUM OXIDE\SODIUM PICOSULFATE
     Indication: Bowel preparation
     Dosage: 1 BOTTLE, 2ND BOTTLE 6 HOURS LATER
     Route: 065
     Dates: start: 20210831, end: 20210901

REACTIONS (14)
  - Loss of consciousness [Recovered/Resolved]
  - Loss of consciousness [Unknown]
  - Hallucination, auditory [Unknown]
  - Psychotic disorder [Unknown]
  - Hyperhidrosis [Unknown]
  - Chills [Unknown]
  - Abdominal distension [Recovered/Resolved]
  - Headache [Recovered/Resolved]
  - Vomiting [Recovered/Resolved]
  - Diarrhoea [Unknown]
  - Drug ineffective [Unknown]
  - Labelled drug-drug interaction issue [Unknown]
  - Treatment noncompliance [Unknown]
  - Inappropriate schedule of product administration [Unknown]

NARRATIVE: CASE EVENT DATE: 20210101
